FAERS Safety Report 4897943-1 (Version None)
Quarter: 2006Q1

REPORT INFORMATION
  Report Type: 
  Country: None (occurrence: None)
  Receive Date: 20060130
  Receipt Date: 20060117
  Transmission Date: 20060701
  Serious: Yes (Hospitalization)
  Sender: FDA-Public Use
  Company Number: GXKR2006PL00556

PATIENT
  Age: 19 Year
  Sex: Male

DRUGS (1)
  1. AMITRIPTYLINE HCL [Suspect]
     Dosage: 10 MG, ORAL
     Route: 048

REACTIONS (13)
  - ANTICHOLINERGIC SYNDROME [None]
  - BLOOD PRESSURE DECREASED [None]
  - CONVULSION [None]
  - DRUG ABUSER [None]
  - DRY SKIN [None]
  - HEART RATE INCREASED [None]
  - INTENTIONAL OVERDOSE [None]
  - LOSS OF CONSCIOUSNESS [None]
  - MYDRIASIS [None]
  - NERVOUS SYSTEM DISORDER [None]
  - OVERDOSE [None]
  - PYREXIA [None]
  - RESPIRATORY RATE INCREASED [None]
